FAERS Safety Report 9713710 (Version 2)
Quarter: 2013Q4

REPORT INFORMATION
  Report Type: Spontaneous
  Country: US (occurrence: None)
  Receive Date: 20131122
  Receipt Date: 20131203
  Transmission Date: 20140711
  Serious: Yes (Disabling, Other)
  Sender: FDA-Public Use
  Company Number: AUR-APL-2013-09578

PATIENT
  Age: 62 Year
  Sex: Male
  Weight: 104.7 kg

DRUGS (3)
  1. GABAPENTIN [Suspect]
     Indication: PRODUCT USED FOR UNKNOWN INDICATION
     Dates: start: 20131025, end: 20131113
  2. LISINOPRIL [Suspect]
     Indication: HYPERTENSION
     Dosage: 20 MG (20 MG, 1 IN 1 D), UNKNOWN
     Dates: end: 2013
  3. LYRICA [Suspect]
     Indication: DIABETIC NEUROPATHY
     Dosage: 300 MG  (300 MG, 1 IN 1 D), ORAL
     Route: 048

REACTIONS (12)
  - Spinal column injury [None]
  - Back injury [None]
  - Thermal burn [None]
  - Pain [None]
  - Back pain [None]
  - Pain in extremity [None]
  - Pain in extremity [None]
  - Hypertension [None]
  - Spinal compression fracture [None]
  - Blood glucose increased [None]
  - Drug ineffective [None]
  - Thermal burn [None]
